FAERS Safety Report 18475707 (Version 3)
Quarter: 2021Q1

REPORT INFORMATION
  Report Type: Spontaneous
  Country: US (occurrence: US)
  Receive Date: 20201106
  Receipt Date: 20210211
  Transmission Date: 20210419
  Serious: Yes (Other)
  Sender: FDA-Public Use
  Company Number: US-PFIZER INC-2020431052

PATIENT
  Age: 45 Year
  Sex: Female

DRUGS (1)
  1. IBRANCE [Suspect]
     Active Substance: PALBOCICLIB
     Indication: BREAST CANCER FEMALE
     Dosage: 100 MG, CYCLIC (ONCE DAILY ON DAYS 1 TO 21, FOLLOWED BY 7 DAYS OF REST, REPEATED EVERY 28DAYS)
     Route: 048
     Dates: start: 202010

REACTIONS (8)
  - Glossodynia [Unknown]
  - Anaemia [Unknown]
  - White blood cell count decreased [Recovering/Resolving]
  - Dry mouth [Unknown]
  - Headache [Unknown]
  - Hypoaesthesia oral [Unknown]
  - Pulmonary thrombosis [Unknown]
  - Oral pain [Unknown]

NARRATIVE: CASE EVENT DATE: 2020
